FAERS Safety Report 9154437 (Version 1)
Quarter: 2013Q1

REPORT INFORMATION
  Report Type: Report from Study
  Country: DE (occurrence: DE)
  Receive Date: 20130311
  Receipt Date: 20130311
  Transmission Date: 20140127
  Serious: Yes (Life-Threatening, Hospitalization, Disabling, Other)
  Sender: FDA-Public Use
  Company Number: DE-009507513-1303DEU004414

PATIENT
  Age: 50 Year
  Sex: Male
  Weight: 84 kg

DRUGS (4)
  1. VICTRELIS [Suspect]
     Indication: CHRONIC HEPATITIS C
     Dosage: 800 MG, TID (200 UNIT NOT REPORTED, 12 IN 1 D)
     Route: 048
     Dates: start: 20120214, end: 20120326
  2. PEGASYS [Suspect]
     Dosage: 180 MICROGRAM, QW
     Route: 058
     Dates: start: 20120114, end: 20120321
  3. COPEGUS [Suspect]
     Indication: CHRONIC HEPATITIS C
     Dosage: 400 MG IN MORNING AND 800 MG IN EVENING
     Route: 048
     Dates: start: 20120114, end: 20120326
  4. DOXYCYCLINE [Concomitant]
     Indication: BRONCHITIS
     Dosage: 200 UNIT NPT REPORTED (100 UNIT NOT REPORTED), BID
     Route: 048
     Dates: start: 20120228, end: 20120304

REACTIONS (5)
  - Myocardial infarction [Not Recovered/Not Resolved]
  - Acute myocardial infarction [Recovering/Resolving]
  - Bronchitis bacterial [Recovered/Resolved]
  - Pancytopenia [Unknown]
  - Anaemia [Recovered/Resolved]
